FAERS Safety Report 10606553 (Version 1)
Quarter: 2014Q4

REPORT INFORMATION
  Report Type: Spontaneous
  Country: US (occurrence: None)
  Receive Date: 20141124
  Receipt Date: 20141124
  Transmission Date: 20150529
  Serious: Yes (Hospitalization)
  Sender: FDA-Public Use
  Company Number: None

PATIENT
  Age: 63 Year
  Sex: Male

DRUGS (1)
  1. ZYTIGA [Suspect]
     Active Substance: ABIRATERONE ACETATE
     Indication: PROSTATE CANCER
     Route: 048
     Dates: start: 20140625

REACTIONS (5)
  - Abdominal pain upper [None]
  - Fatigue [None]
  - Asthenia [None]
  - Bone pain [None]
  - Peripheral swelling [None]

NARRATIVE: CASE EVENT DATE: 20141118
